FAERS Safety Report 6505838-2 (Version None)
Quarter: 2009Q4

REPORT INFORMATION
  Report Type: 
  Country: None (occurrence: None)
  Receive Date: 20091218
  Receipt Date: 20091214
  Transmission Date: 20100525
  Serious: Yes (Life-Threatening, Other)
  Sender: FDA-Public Use
  Company Number: FR-BRISTOL-MYERS SQUIBB COMPANY-14895288

PATIENT
  Age: 61 Year
  Sex: Female

DRUGS (16)
  1. APROVEL TABS 300 MG [Suspect]
     Dosage: REINTRODUCED
     Route: 048
     Dates: end: 20090323
  2. LASILIX [Suspect]
     Dosage: 1 DF - 2 AND HALF TABLETS
     Route: 048
     Dates: end: 20090323
  3. TRIATEC [Suspect]
     Dosage: 1 TABS
     Route: 048
     Dates: end: 20090323
  4. MEDIATENSYL [Concomitant]
     Dates: end: 20090323
  5. DIFFU-K [Concomitant]
     Route: 048
     Dates: end: 20090323
  6. THEOPHYLLINE [Concomitant]
     Route: 048
     Dates: end: 20090323
  7. MOPRAL [Concomitant]
     Dosage: 1 TABS
     Route: 048
  8. FENOFIBRATE [Concomitant]
     Route: 048
     Dates: end: 20090323
  9. URSO 250 [Concomitant]
     Dosage: 6 DF- 6 INTAKES
     Route: 048
     Dates: end: 20090323
  10. MEPRONIZINE [Concomitant]
     Dosage: 2 DF - 2 INTAKES
     Route: 048
     Dates: end: 20090323
  11. FORADIL [Concomitant]
     Dosage: 3 DF -3 INTAKES
     Route: 055
     Dates: end: 20090323
  12. SPIRIVA [Concomitant]
     Dosage: 1 DF - 1 INTAKE
     Route: 055
     Dates: end: 20090323
  13. LYRICA [Concomitant]
     Dosage: 1 CAPS
     Route: 048
     Dates: end: 20090323
  14. DAFLON [Concomitant]
     Route: 048
     Dates: end: 20090323
  15. HUMALOG [Concomitant]
     Dosage: HUMALOG MIX 50
     Route: 058
  16. ACTRAPID [Concomitant]
     Route: 058

REACTIONS (3)
  - GASTROENTERITIS [None]
  - GENERAL PHYSICAL HEALTH DETERIORATION [None]
  - RENAL FAILURE ACUTE [None]
